FAERS Safety Report 9995291 (Version 2)
Quarter: 2014Q1

REPORT INFORMATION
  Report Type: Not Available
  Country: IT (occurrence: IT)
  Receive Date: 20140311
  Receipt Date: 20140311
  Transmission Date: 20141002
  Serious: Yes (Death)
  Sender: FDA-Public Use
  Company Number: IT-ASTELLAS-2014EU001961

PATIENT
  Age: 69 Year
  Sex: Male

DRUGS (6)
  1. PROGRAF [Suspect]
     Indication: LIVER TRANSPLANT
     Dosage: 1 MG, UID/QD
     Route: 048
     Dates: start: 20130211, end: 20131227
  2. DEURSIL [Concomitant]
     Indication: ENDOSCOPY BILIARY TRACT
     Dosage: 300 MG, UNKNOWN/D
     Route: 048
  3. TRIATEC                            /00116401/ [Concomitant]
     Indication: ESSENTIAL HYPERTENSION
     Dosage: 2.5 MG, UNKNOWN/D
     Route: 048
  4. CARDURA [Concomitant]
     Indication: ESSENTIAL HYPERTENSION
     Dosage: 4 MG, UNKNOWN/D
     Route: 048
  5. ZOLOFT [Concomitant]
     Indication: ADJUSTMENT DISORDER WITH DEPRESSED MOOD
     Dosage: 50 MG, UNKNOWN/D
     Route: 048
  6. LANSOX [Concomitant]
     Indication: GASTROOESOPHAGEAL REFLUX DISEASE
     Dosage: 30 MG, UNKNOWN/D
     Route: 048

REACTIONS (5)
  - Cardiac failure [Fatal]
  - Sepsis [Fatal]
  - Renal impairment [Fatal]
  - Asthenia [Fatal]
  - Dyspnoea [Fatal]
